FAERS Safety Report 5513717-2 (Version None)
Quarter: 2007Q4

REPORT INFORMATION
  Report Type: 
  Country: None (occurrence: None)
  Receive Date: 20071109
  Receipt Date: 20071109
  Transmission Date: 20080405
  Serious: Yes (Other)
  Sender: FDA-Public Use
  Company Number: None

PATIENT

DRUGS (1)
  1. ACITRETIN [Suspect]
     Indication: ERYTHRODERMIC PSORIASIS
     Dosage: 25 MG DAILY ORAL
     Route: 048
     Dates: start: 20070215, end: 20070315

REACTIONS (3)
  - ABORTION INDUCED [None]
  - DRUG EXPOSURE DURING PREGNANCY [None]
  - PREGNANCY [None]
